FAERS Safety Report 9193333 (Version 1)
Quarter: 2013Q1

REPORT INFORMATION
  Report Type: Spontaneous
  Country: US (occurrence: None)
  Receive Date: 20120703
  Receipt Date: 20120703
  Transmission Date: 20140127
  Serious: No
  Sender: FDA-Public Use
  Company Number: PHEH2012US006495

PATIENT
  Sex: Male

DRUGS (5)
  1. GILENYA [Suspect]
     Route: 048
  2. ZOCOR (SIMVASTATIN) [Concomitant]
  3. BACLOFEN (BACLOFEN) [Concomitant]
  4. BUPROPION (BUPROPION) [Concomitant]
  5. CIALIS (TADALAFIL) [Concomitant]

REACTIONS (1)
  - Fatigue [None]
